FAERS Safety Report 18571470 (Version 2)
Quarter: 2021Q3

REPORT INFORMATION
  Report Type: Report from Study
  Country: GB (occurrence: GB)
  Receive Date: 20201202
  Receipt Date: 20210827
  Transmission Date: 20211014
  Serious: Yes (Hospitalization, Other)
  Sender: FDA-Public Use
  Company Number: GB-EMD SERONO-9200180

PATIENT
  Age: 49 Year
  Sex: Female

DRUGS (3)
  1. MAVENCLAD [Suspect]
     Active Substance: CLADRIBINE
     Dosage: SECOND YEAR FIRST WEEK THERAPY: TWO TABLETS PER DAY ON DAYS 1 TO 5.
     Route: 048
     Dates: start: 20201019, end: 202010
  2. MAVENCLAD [Suspect]
     Active Substance: CLADRIBINE
     Indication: MULTIPLE SCLEROSIS
     Dosage: FIRST YEAR FIRST WEEK THERAPY: TWO TABLETS PER DAY ON DAYS 1 TO 5 (EACH OF 10 MG).
     Route: 048
     Dates: start: 20190923
  3. MAVENCLAD [Suspect]
     Active Substance: CLADRIBINE
     Dosage: FIRST YEAR SECOND WEEK THERAPY: TWO TABLETS PER DAY ON DAYS 1 TO 5.
     Route: 048
     Dates: start: 20200106, end: 20200110

REACTIONS (2)
  - Omphalitis [Unknown]
  - Multiple sclerosis relapse [Recovering/Resolving]
